FAERS Safety Report 19674400 (Version 1)
Quarter: 2021Q3

REPORT INFORMATION
  Report Type: Spontaneous
  Country: ES (occurrence: ES)
  Receive Date: 20210809
  Receipt Date: 20210809
  Transmission Date: 20211014
  Serious: Yes (Hospitalization, Other)
  Sender: FDA-Public Use
  Company Number: ES-AUROBINDO-AUR-APL-2021-033784

PATIENT
  Age: 26 Year
  Sex: Female

DRUGS (2)
  1. PIPERACILLIN AND TAZOBACTAM [Suspect]
     Active Substance: PIPERACILLIN SODIUM\TAZOBACTAM SODIUM
     Indication: FEBRILE NEUTROPENIA
     Dosage: UNK
     Route: 042
     Dates: start: 20210215, end: 20210222
  2. AMIKACIN. [Suspect]
     Active Substance: AMIKACIN
     Indication: FEBRILE NEUTROPENIA
     Dosage: UNK
     Route: 042
     Dates: start: 20210215, end: 20210222

REACTIONS (2)
  - Rash [Recovered/Resolved]
  - Angioedema [Recovered/Resolved]

NARRATIVE: CASE EVENT DATE: 20210220
